FAERS Safety Report 13861098 (Version 2)
Quarter: 2017Q3

REPORT INFORMATION
  Report Type: Spontaneous
  Country: BR (occurrence: BR)
  Receive Date: 20170811
  Receipt Date: 20170821
  Transmission Date: 20171127
  Serious: No
  Sender: FDA-Public Use
  Company Number: BR-PFIZER INC-2017342656

PATIENT
  Age: 79 Year
  Sex: Female

DRUGS (6)
  1. XALATAN [Concomitant]
     Active Substance: LATANOPROST
     Dosage: 1 DF, DAILY ON THE RIGHT EYE
  2. PRISTIQ EXTENDED-RELEASE [Suspect]
     Active Substance: DESVENLAFAXINE SUCCINATE
     Indication: DEPRESSION
     Dosage: ONE TABLET (50 MG), DAILY
     Dates: start: 201703
  3. XALATAN [Concomitant]
     Active Substance: LATANOPROST
     Indication: GLAUCOMA
     Dosage: 1 DF, DAILY EACH EYE
  4. COSOPT [Concomitant]
     Active Substance: DORZOLAMIDE HYDROCHLORIDE\TIMOLOL MALEATE
     Dosage: UNK
  5. PRISTIQ EXTENDED-RELEASE [Suspect]
     Active Substance: DESVENLAFAXINE SUCCINATE
     Indication: ANXIETY
  6. XALATAN [Concomitant]
     Active Substance: LATANOPROST
     Dosage: 1 DF, DAILY ON THE RIGHT EYE

REACTIONS (1)
  - Intraocular pressure increased [Recovered/Resolved]

NARRATIVE: CASE EVENT DATE: 201706
